FAERS Safety Report 5013644-3 (Version None)
Quarter: 2006Q2

REPORT INFORMATION
  Report Type: 
  Country: None (occurrence: None)
  Receive Date: 20060530
  Receipt Date: 20060519
  Transmission Date: 20061013
  Serious: Yes (Death)
  Sender: FDA-Public Use
  Company Number: FR-GLAXOSMITHKLINE-B0424730A

PATIENT
  Age: 41 Year
  Sex: Female

DRUGS (6)
  1. ZOPHREN [Suspect]
     Dosage: 16MG CYCLIC
     Route: 048
     Dates: start: 20060418
  2. GRANOCYTE [Concomitant]
     Route: 065
  3. VOGALENE [Concomitant]
     Route: 065
  4. METOCLOPRAMIDE [Concomitant]
     Route: 065
  5. CHEMOTHERAPY [Concomitant]
     Route: 065
  6. DURAGESIC-100 [Concomitant]
     Route: 065

REACTIONS (1)
  - CARDIAC ARREST [None]
